FAERS Safety Report 9451206 (Version 1)
Quarter: 2013Q3

REPORT INFORMATION
  Report Type: Spontaneous
  Country: FR (occurrence: FR)
  Receive Date: 20130809
  Receipt Date: 20130809
  Transmission Date: 20140515
  Serious: Yes (Hospitalization)
  Sender: FDA-Public Use
  Company Number: FR-TEVA-422523ISR

PATIENT
  Age: 73 Year
  Sex: Female

DRUGS (3)
  1. MIRTAZAPINE [Suspect]
     Dosage: 15 MILLIGRAM DAILY;
     Route: 048
     Dates: start: 201302, end: 20130502
  2. ARICEPT [Suspect]
     Dosage: 10 MILLIGRAM DAILY;
     Route: 048
     Dates: start: 2008, end: 20130506
  3. CIFLOX [Suspect]
     Indication: PAIN
     Route: 048
     Dates: start: 20130429, end: 20130430

REACTIONS (3)
  - Cholestasis [Recovered/Resolved]
  - Infection [Recovered/Resolved]
  - Pain [Recovered/Resolved]
